FAERS Safety Report 5491676-9 (Version None)
Quarter: 2007Q4

REPORT INFORMATION
  Report Type: 
  Country: None (occurrence: None)
  Receive Date: 20071018
  Receipt Date: 20071018
  Transmission Date: 20080405
  Serious: Yes (Other)
  Sender: FDA-Public Use
  Company Number: None

PATIENT
  Age: 80 Year
  Sex: Female
  Weight: 61.6892 kg

DRUGS (1)
  1. AVELOX [Suspect]
     Indication: PNEUMONIA
     Dosage: 400MG 1 TAB DAILY PO
     Route: 048
     Dates: start: 20071014, end: 20071014

REACTIONS (2)
  - AGITATION [None]
  - HALLUCINATION, VISUAL [None]
